FAERS Safety Report 5203644-2 (Version None)
Quarter: 2007Q1

REPORT INFORMATION
  Report Type: 
  Country: None (occurrence: None)
  Receive Date: 20070110
  Receipt Date: 20060901
  Transmission Date: 20070707
  Serious: Yes (Hospitalization)
  Sender: FDA-Public Use
  Company Number: US-JNJFOC-20030904440

PATIENT
  Sex: Female
  Weight: 87.54 kg

DRUGS (11)
  1. RISPERDAL [Suspect]
     Route: 048
  2. RISPERDAL [Suspect]
     Indication: BIPOLAR DISORDER
     Route: 048
  3. PREMARIN [Concomitant]
  4. NORVASC [Concomitant]
  5. NOLVADEX [Concomitant]
  6. PAXIL [Concomitant]
  7. GLUCOTROL XL [Concomitant]
     Dosage: (TWO 5 MG TABLETS=10 MG)
  8. GLUCOTROL XL [Concomitant]
  9. COSOPT [Concomitant]
  10. ASPIRIN [Concomitant]
  11. MULTI-VITAMIN [Concomitant]

REACTIONS (10)
  - BASAL CELL CARCINOMA [None]
  - DIABETES MELLITUS [None]
  - DIARRHOEA [None]
  - EYE OEDEMA [None]
  - HEADACHE [None]
  - OEDEMA PERIPHERAL [None]
  - RASH [None]
  - RENAL CELL CARCINOMA STAGE UNSPECIFIED [None]
  - TARDIVE DYSKINESIA [None]
  - URINARY TRACT INFECTION [None]
